FAERS Safety Report 7356836-0 (Version None)
Quarter: 2011Q1

REPORT INFORMATION
  Report Type: 
  Country: None (occurrence: None)
  Receive Date: 20110317
  Receipt Date: 20110307
  Transmission Date: 20110831
  Serious: Yes (Hospitalization)
  Sender: FDA-Public Use
  Company Number: US-BIOGENIDEC-2011BI008933

PATIENT
  Age: 49 Year
  Sex: Female
  Weight: 68 kg

DRUGS (4)
  1. BACLOFEN [Concomitant]
  2. AVONEX [Suspect]
     Route: 030
  3. TEMAZEPAM [Concomitant]
     Indication: SLEEP DISORDER
  4. AVONEX [Suspect]
     Indication: MULTIPLE SCLEROSIS
     Route: 030
     Dates: start: 19990701

REACTIONS (4)
  - AMNESIA [None]
  - PERONEAL NERVE PALSY [None]
  - CYSTITIS [None]
  - GAIT DISTURBANCE [None]
